FAERS Safety Report 9715872 (Version 2)
Quarter: 2013Q4

REPORT INFORMATION
  Report Type: Not Available
  Country: GB (occurrence: GB)
  Receive Date: 20131127
  Receipt Date: 20131203
  Transmission Date: 20140711
  Serious: Yes (Other)
  Sender: FDA-Public Use
  Company Number: GB-IAC JAPAN XML-GBR-2013-0016329

PATIENT
  Sex: Male

DRUGS (2)
  1. BUTRANS TRANSDERMAL PATCH [Suspect]
     Indication: PRODUCT USED FOR UNKNOWN INDICATION
     Dosage: 20 MCG, Q1H
     Route: 062
     Dates: start: 201306
  2. BUTRANS TRANSDERMAL PATCH [Suspect]
     Dosage: UNK
     Route: 062
     Dates: end: 201306

REACTIONS (7)
  - Accidental overdose [Unknown]
  - Dyshidrotic eczema [Unknown]
  - Eczema [Not Recovered/Not Resolved]
  - Application site irritation [Unknown]
  - Pruritus generalised [Unknown]
  - Rash pruritic [Unknown]
  - Excoriation [Unknown]
